FAERS Safety Report 5978784-0 (Version None)
Quarter: 2008Q4

REPORT INFORMATION
  Report Type: 
  Country: None (occurrence: None)
  Receive Date: 20081204
  Receipt Date: 20081126
  Transmission Date: 20090506
  Serious: Yes (Death)
  Sender: FDA-Public Use
  Company Number: GB-AVENTIS-200821091GDDC

PATIENT
  Age: 46 Year
  Sex: Female
  Weight: 71.9 kg

DRUGS (2)
  1. TAXOTERE [Suspect]
     Route: 042
     Dates: start: 20080408, end: 20080408
  2. HERCEPTIN [Suspect]
     Route: 042
     Dates: start: 20080407, end: 20080407

REACTIONS (3)
  - ABDOMINAL PAIN [None]
  - CARDIAC FAILURE [None]
  - DEATH [None]
